FAERS Safety Report 19485490 (Version 2)
Quarter: 2021Q3

REPORT INFORMATION
  Report Type: Spontaneous
  Country: US (occurrence: US)
  Receive Date: 20210702
  Receipt Date: 20210813
  Transmission Date: 20211014
  Serious: Yes (Death, Hospitalization, Other)
  Sender: FDA-Public Use
  Company Number: US-TEVA-2021-US-1928030

PATIENT
  Age: 80 Year
  Sex: Male
  Weight: 104.87 kg

DRUGS (32)
  1. VALSARTAN TEVA [Suspect]
     Active Substance: VALSARTAN
     Indication: HYPERTENSION
     Dosage: DOSE: 320 MG
     Route: 048
     Dates: start: 20150122, end: 20151001
  2. VALSARTAN SOLCO [Suspect]
     Active Substance: VALSARTAN
     Dosage: DOSE: 320 MG
     Route: 048
     Dates: start: 20160615, end: 20170205
  3. MULTIVITAMIN [Concomitant]
     Active Substance: VITAMINS
     Indication: VITAMIN SUPPLEMENTATION
     Dosage: 1 TABLET, ONCE A DAY
     Route: 048
     Dates: start: 20150901, end: 20180928
  4. CARVEDILOL. [Concomitant]
     Active Substance: CARVEDILOL
     Indication: HYPERTENSION
     Dosage: DOSE: 6.25 MG ONE TABLET, TWICE DAILY
     Route: 065
     Dates: start: 20110126, end: 20110709
  5. CARVEDILOL. [Concomitant]
     Active Substance: CARVEDILOL
     Dosage: DOSE: 12.5 MG
     Dates: start: 20180618, end: 20190127
  6. DIOVAN [Concomitant]
     Active Substance: VALSARTAN
     Indication: HYPERTENSION
     Dosage: DOSE: 320 MG, ONCE A DAY
     Route: 048
     Dates: start: 20120201, end: 20120501
  7. VALSARTAN SOLCO [Suspect]
     Active Substance: VALSARTAN
     Dosage: DOSE: 320 MG
     Route: 048
     Dates: start: 20170403, end: 20170702
  8. SIMVASTATIN. [Concomitant]
     Active Substance: SIMVASTATIN
     Dosage: DOSE:20 MG
     Route: 065
     Dates: start: 20170526, end: 20190127
  9. CALCIUM [Concomitant]
     Active Substance: CALCIUM
     Indication: MINERAL SUPPLEMENTATION
     Dosage: DOSE: 600 MG?200 UNITS, 3 TIMES A DAY
     Route: 048
     Dates: start: 20150901, end: 20180928
  10. CARVEDILOL. [Concomitant]
     Active Substance: CARVEDILOL
     Dosage: DOSE: 12.5 MG TWICE DAILY
     Route: 065
     Dates: start: 20131015, end: 20180617
  11. VITAMIN B12 [Concomitant]
     Active Substance: CYANOCOBALAMIN
     Indication: VITAMIN SUPPLEMENTATION
     Dosage: DOSE: 1000 MCG ONCE DAILY
     Route: 048
     Dates: start: 20150901, end: 20180928
  12. CEPHALEXIN. [Concomitant]
     Active Substance: CEPHALEXIN
     Dosage: DOSE: 500 MG
     Route: 065
  13. AMLODIPINE [Concomitant]
     Active Substance: AMLODIPINE BESYLATE
     Indication: HYPERTENSION
     Dosage: DOSE:10 MG, ONE PILL ONCE A DAY
     Route: 065
  14. VALSARTAN TEVA [Suspect]
     Active Substance: VALSARTAN
     Dosage: DOSE: 320 MG
     Route: 048
     Dates: start: 20151109, end: 20160103
  15. VALSARTAN QUALITEST [Suspect]
     Active Substance: VALSARTAN
     Indication: HYPERTENSION
     Dosage: DOSE: 320 MG
     Route: 048
     Dates: start: 20160326, end: 20160614
  16. ACETAMINOPHEN. [Concomitant]
     Active Substance: ACETAMINOPHEN
     Dosage: DOSE: 500 MG
     Route: 065
  17. VALSARTAN SOLCO [Suspect]
     Active Substance: VALSARTAN
     Indication: HYPERTENSION
     Dosage: DOSE: 320 MG
     Route: 048
     Dates: start: 20160104, end: 20160325
  18. HYDRODIURIL [Concomitant]
     Active Substance: HYDROCHLOROTHIAZIDE
     Route: 065
  19. VALSARTAN OHM [Suspect]
     Active Substance: VALSARTAN
     Indication: HYPERTENSION
     Dosage: DOSE: 320 MG
     Route: 048
     Dates: start: 20151002, end: 20151108
  20. VALSARTAN SOLCO [Suspect]
     Active Substance: VALSARTAN
     Dosage: DOSE: 320 MG
     Route: 048
     Dates: start: 20170802, end: 20180203
  21. VALSARTAN SOLCO [Suspect]
     Active Substance: VALSARTAN
     Dosage: DOSE: 320 MG
     Route: 048
     Dates: start: 20180204, end: 20180805
  22. SIMVASTATIN. [Concomitant]
     Active Substance: SIMVASTATIN
     Indication: BLOOD CHOLESTEROL INCREASED
     Dosage: DOSE: 20 MG, ONCE A DAY
     Route: 048
     Dates: start: 20140110, end: 20170525
  23. SIMVASTATIN. [Concomitant]
     Active Substance: SIMVASTATIN
     Dosage: DOSE: 20 MG
     Route: 065
     Dates: start: 20110126, end: 20140406
  24. CARVEDILOL. [Concomitant]
     Active Substance: CARVEDILOL
     Dosage: DOSE: 6.25 MG TWICE DAILY
     Route: 065
     Dates: start: 20131015, end: 20180617
  25. HYDROCHLOROTHIAZIDE. [Concomitant]
     Active Substance: HYDROCHLOROTHIAZIDE
     Indication: FLUID RETENTION
     Dosage: DOSE: 25 MG, ONCE DAILY
     Route: 048
     Dates: start: 20130708, end: 20160219
  26. VITAMIN D3 [Concomitant]
     Active Substance: CHOLECALCIFEROL
     Indication: VITAMIN D DEFICIENCY
     Dosage: DOSE: 800 AND 1000 IU ONCE DAILY
     Route: 048
     Dates: start: 20150901, end: 20180928
  27. LIDOCAINE. [Concomitant]
     Active Substance: LIDOCAINE
     Dosage: VISCOUS 2% MUCOSAL SOLUTION
     Route: 065
  28. METHIMAZOLE. [Concomitant]
     Active Substance: METHIMAZOLE
     Indication: HYPERTHYROIDISM
     Dosage: DOSE: 10 MG, ONE PILL ONCE A DAY
     Route: 065
  29. ASPIRIN. [Concomitant]
     Active Substance: ASPIRIN
     Indication: ANTICOAGULANT THERAPY
     Dosage: DOSE: 81 MG, ONCE DAILY
     Route: 048
     Dates: start: 20150901, end: 20180928
  30. CASODEX [Concomitant]
     Active Substance: BICALUTAMIDE
     Indication: PROSTATE CANCER
     Dosage: DOSE: 50 MG, ONCE DAILY
     Route: 048
     Dates: start: 20120210, end: 20170130
  31. DIOVAN [Concomitant]
     Active Substance: VALSARTAN
     Dosage: DOSE: 320 MG
     Route: 065
     Dates: start: 20120716, end: 20150121
  32. IBUPROFEN. [Concomitant]
     Active Substance: IBUPROFEN
     Dosage: DOSE: 200 MG
     Route: 065

REACTIONS (12)
  - Laryngeal cancer [Fatal]
  - Asthenia [Unknown]
  - Acute respiratory failure [Fatal]
  - Atrial fibrillation [Unknown]
  - Sepsis [Unknown]
  - Oesophageal carcinoma [Unknown]
  - Dehydration [Unknown]
  - Dysphagia [Unknown]
  - Malnutrition [Unknown]
  - Obstructive airways disorder [Unknown]
  - Pharyngeal cancer [Fatal]
  - Pneumonia aspiration [Unknown]

NARRATIVE: CASE EVENT DATE: 20180928
